FAERS Safety Report 15167696 (Version 6)
Quarter: 2021Q2

REPORT INFORMATION
  Report Type: Spontaneous
  Country: US (occurrence: US)
  Receive Date: 20180719
  Receipt Date: 20210528
  Transmission Date: 20210716
  Serious: No
  Sender: FDA-Public Use
  Company Number: US-PFIZER INC-2018287475

PATIENT
  Age: 46 Year
  Sex: Female

DRUGS (6)
  1. SOMA [Concomitant]
     Active Substance: CARISOPRODOL
     Dosage: 350 AS NEEDED OR 3 TIMES A DAY
  2. LYRICA [Suspect]
     Active Substance: PREGABALIN
     Indication: FIBROMYALGIA
     Dosage: 200 MG, THREE TIMES A DAY
  3. NORCO [Concomitant]
     Active Substance: ACETAMINOPHEN\HYDROCODONE BITARTRATE
     Dosage: [HYDROCODONE BITARTRATE 7]/ [PARACETAMOL 325], AS NEEDED OR 3 TIMES A DAY
  4. PLAQUENIL [Concomitant]
     Active Substance: HYDROXYCHLOROQUINE SULFATE
     Dosage: 50 MG, 2X/DAY
  5. SULFASALAZINE. [Concomitant]
     Active Substance: SULFASALAZINE
     Dosage: 500 MG, 2X/DAY
  6. MIRTAZAPINE. [Concomitant]
     Active Substance: MIRTAZAPINE
     Dosage: 30 MG, EVERY NIGHT

REACTIONS (16)
  - Depression [Unknown]
  - Emotional disorder [Unknown]
  - Anger [Unknown]
  - Intentional product misuse [Recovered/Resolved]
  - Condition aggravated [Unknown]
  - Therapeutic response unexpected [Unknown]
  - Back pain [Not Recovered/Not Resolved]
  - Pain [Recovered/Resolved]
  - Frustration tolerance decreased [Unknown]
  - Weight increased [Not Recovered/Not Resolved]
  - Overweight [Not Recovered/Not Resolved]
  - Off label use [Unknown]
  - Malaise [Unknown]
  - Confusional state [Unknown]
  - Feeling abnormal [Unknown]
  - Crying [Unknown]
